FAERS Safety Report 10231057 (Version 1)
Quarter: 2014Q2

REPORT INFORMATION
  Report Type: Spontaneous
  Country: GB (occurrence: GB)
  Receive Date: 20140611
  Receipt Date: 20140611
  Transmission Date: 20141212
  Serious: Yes (Other)
  Sender: FDA-Public Use
  Company Number: GB-JNJFOC-20140519153

PATIENT
  Age: 42 Year
  Sex: Male

DRUGS (31)
  1. TOPIRAMATE [Suspect]
     Indication: PRODUCT USED FOR UNKNOWN INDICATION
     Route: 048
  2. LAMICTAL [Suspect]
     Indication: EPILEPSY
     Route: 065
  3. LAMICTAL [Suspect]
     Indication: EPILEPSY
     Route: 065
  4. LAMICTAL [Suspect]
     Indication: EPILEPSY
     Route: 065
  5. LAMICTAL [Suspect]
     Indication: EPILEPSY
     Route: 065
  6. LAMICTAL [Suspect]
     Indication: EPILEPSY
     Route: 065
     Dates: start: 200309
  7. LAMICTAL [Suspect]
     Indication: EPILEPSY
     Route: 065
  8. LAMOTRIGINE [Suspect]
     Indication: PRODUCT USED FOR UNKNOWN INDICATION
     Route: 065
  9. LAMOTRIGINE [Suspect]
     Indication: PRODUCT USED FOR UNKNOWN INDICATION
     Route: 065
  10. LAMOTRIGINE [Suspect]
     Indication: PRODUCT USED FOR UNKNOWN INDICATION
     Route: 065
  11. LAMOTRIGINE [Suspect]
     Indication: PRODUCT USED FOR UNKNOWN INDICATION
     Route: 065
  12. LAMOTRIGINE [Suspect]
     Indication: PRODUCT USED FOR UNKNOWN INDICATION
     Route: 065
  13. MIDAZOLAM [Suspect]
     Indication: PRODUCT USED FOR UNKNOWN INDICATION
     Route: 065
  14. CARBAMAZEPINE [Suspect]
     Indication: CONVULSION
     Route: 065
  15. CARBAMAZEPINE [Suspect]
     Indication: CONVULSION
     Route: 065
  16. CARBAMAZEPINE [Suspect]
     Indication: CONVULSION
     Route: 065
  17. CARBAMAZEPINE [Suspect]
     Indication: CONVULSION
     Route: 065
  18. CARBAMAZEPINE [Suspect]
     Indication: CONVULSION
     Route: 065
  19. TEGRETOL [Suspect]
     Indication: EPILEPSY
     Route: 065
  20. TEGRETOL [Suspect]
     Indication: EPILEPSY
     Route: 065
  21. TEGRETOL [Suspect]
     Indication: EPILEPSY
     Route: 065
  22. TEGRETOL [Suspect]
     Indication: EPILEPSY
     Route: 065
  23. TEGRETOL [Suspect]
     Indication: EPILEPSY
     Route: 065
  24. TEGRETOL [Suspect]
     Indication: EPILEPSY
     Route: 065
     Dates: start: 20140206
  25. TEGRETOL [Suspect]
     Indication: EPILEPSY
     Route: 065
     Dates: start: 200309, end: 20120511
  26. TEGRETOL [Suspect]
     Indication: EPILEPSY
     Route: 065
     Dates: start: 1989, end: 20140101
  27. TEGRETOL [Suspect]
     Indication: EPILEPSY
     Route: 065
  28. VALPROIC ACID [Suspect]
     Indication: PRODUCT USED FOR UNKNOWN INDICATION
     Route: 065
  29. VALPROIC ACID [Suspect]
     Indication: PRODUCT USED FOR UNKNOWN INDICATION
     Route: 065
  30. VITAMIN D [Concomitant]
     Indication: BONE DISORDER
     Route: 065
  31. ADCAL-D3 [Concomitant]
     Indication: BONE DISORDER
     Route: 065

REACTIONS (46)
  - Staring [Unknown]
  - Toxicity to various agents [Recovered/Resolved]
  - Microcephaly [Unknown]
  - Convulsion [Unknown]
  - Complex partial seizures [Unknown]
  - Hallucination [Unknown]
  - Generalised tonic-clonic seizure [Unknown]
  - Epileptic psychosis [Unknown]
  - Catatonia [Unknown]
  - Drug level increased [Unknown]
  - Convulsion [Unknown]
  - Bone density decreased [Unknown]
  - Hyperexplexia [Unknown]
  - Ataxia [Not Recovered/Not Resolved]
  - Frontal lobe epilepsy [Unknown]
  - Petit mal epilepsy [Unknown]
  - Cerebral ventricle dilatation [Unknown]
  - Emotional disorder [Unknown]
  - Musculoskeletal stiffness [Unknown]
  - Upper respiratory tract infection [Unknown]
  - Agitation [Unknown]
  - Tonic clonic movements [Not Recovered/Not Resolved]
  - Dyskinesia [Not Recovered/Not Resolved]
  - Tremor [Unknown]
  - Aggression [Unknown]
  - Irritability [Unknown]
  - Emotional distress [Unknown]
  - Depressed mood [Unknown]
  - Diarrhoea [Unknown]
  - Abnormal behaviour [Unknown]
  - Fear [Unknown]
  - Suspiciousness [Unknown]
  - Fatigue [Unknown]
  - Stress [Unknown]
  - Malaise [Unknown]
  - Decreased appetite [Unknown]
  - Depressed level of consciousness [Unknown]
  - Gait disturbance [Unknown]
  - Gastrointestinal disorder [Unknown]
  - Frustration [Unknown]
  - Euphoric mood [Unknown]
  - Distractibility [Unknown]
  - Insomnia [Unknown]
  - Balance disorder [Unknown]
  - Anxiety [Unknown]
  - Cognitive disorder [Unknown]
